FAERS Safety Report 14145319 (Version 1)
Quarter: 2017Q4

REPORT INFORMATION
  Report Type: Spontaneous
  Country: US (occurrence: US)
  Receive Date: 20171031
  Receipt Date: 20171031
  Transmission Date: 20180321
  Serious: Yes (Other)
  Sender: FDA-Public Use
  Company Number: US-ELI_LILLY_AND_COMPANY-US201710008432

PATIENT
  Age: 83 Year
  Sex: Female

DRUGS (2)
  1. HUMALOG [Suspect]
     Active Substance: INSULIN LISPRO
     Dosage: UNK, UNKNOWN
     Route: 065
  2. HUMALOG [Suspect]
     Active Substance: INSULIN LISPRO
     Indication: PRODUCT USED FOR UNKNOWN INDICATION
     Dosage: UNK, UNKNOWN
     Route: 065

REACTIONS (5)
  - Limb injury [Recovering/Resolving]
  - Nerve compression [Recovering/Resolving]
  - Fall [Recovering/Resolving]
  - Intervertebral disc protrusion [Recovering/Resolving]
  - Bone fragmentation [Recovering/Resolving]

NARRATIVE: CASE EVENT DATE: 201703
